FAERS Safety Report 10439174 (Version 3)
Quarter: 2014Q3

REPORT INFORMATION
  Report Type: Report from Study
  Country: CA (occurrence: CA)
  Receive Date: 20140908
  Receipt Date: 20140926
  Transmission Date: 20150326
  Serious: Yes (Other)
  Sender: FDA-Public Use
  Company Number: PHHY2014CA088233

PATIENT
  Age: 55 Year
  Sex: Male

DRUGS (7)
  1. DILTIAZEM [Concomitant]
     Active Substance: DILTIAZEM
     Dosage: UNK UKN, UNK
  2. ZUCLOPENTHIXOL [Concomitant]
     Active Substance: ZUCLOPENTHIXOL
     Dosage: UNK UKN, UNK
  3. CLOZARIL [Suspect]
     Active Substance: CLOZAPINE
     Dosage: UNK
     Route: 048
     Dates: start: 20090224
  4. BISOPROLOL [Concomitant]
     Active Substance: BISOPROLOL
     Dosage: UNK UKN, UNK
  5. RAMIPRIL. [Concomitant]
     Active Substance: RAMIPRIL
     Dosage: UNK UKN, UNK
  6. LIPITOR [Concomitant]
     Active Substance: ATORVASTATIN CALCIUM
     Dosage: UNK UKN, UNK
  7. HYDROCHLOROTHIAZIDE. [Concomitant]
     Active Substance: HYDROCHLOROTHIAZIDE
     Dosage: UNK UKN, UNK

REACTIONS (8)
  - Neutrophilia [Recovered/Resolved]
  - Lymphocyte morphology abnormal [Unknown]
  - Lymphocytosis [Unknown]
  - Infection [Unknown]
  - Monocytosis [Unknown]
  - Anisocytosis [Unknown]
  - Lymphoproliferative disorder [Unknown]
  - Leukocytosis [Unknown]

NARRATIVE: CASE EVENT DATE: 20140708
